FAERS Safety Report 6695248-X (Version None)
Quarter: 2010Q2

REPORT INFORMATION
  Report Type: 
  Country: None (occurrence: None)
  Receive Date: 20100423
  Receipt Date: 20100412
  Transmission Date: 20101027
  Serious: Yes (Other)
  Sender: FDA-Public Use
  Company Number: US-ELI_LILLY_AND_COMPANY-US201003004532

PATIENT
  Sex: Female
  Weight: 67.12 kg

DRUGS (8)
  1. FORTEO [Suspect]
     Indication: OSTEOPOROSIS
     Dosage: UNK, UNK
     Dates: start: 20100101
  2. VITAMIN D [Concomitant]
     Dosage: 2000 IU, DAILY (1/D)
  3. CALCIUM [Concomitant]
     Dosage: 1500 MG, DAILY (1/D)
  4. MULTI-VITAMIN [Concomitant]
  5. VICODIN [Concomitant]
     Dosage: 7.5 MG, AS NEEDED
  6. LEVOTHYROXINE [Concomitant]
     Dosage: 0.112 MG, DAILY (1/D)
  7. ZOLOFT [Concomitant]
  8. ASPIRIN [Concomitant]
     Dosage: 81 MG, UNKNOWN

REACTIONS (4)
  - ASTHENIA [None]
  - BALANCE DISORDER [None]
  - FALL [None]
  - PELVIC FRACTURE [None]
